FAERS Safety Report 6139366-3 (Version None)
Quarter: 2009Q2

REPORT INFORMATION
  Report Type: 
  Country: None (occurrence: None)
  Receive Date: 20090401
  Receipt Date: 20090323
  Transmission Date: 20091009
  Serious: Yes (Life-Threatening)
  Sender: FDA-Public Use
  Company Number: FR-ROCHE-623367

PATIENT
  Sex: Female

DRUGS (3)
  1. ROCEPHIN [Suspect]
     Indication: PYELONEPHRITIS
     Route: 042
  2. SANDOGLOBULIN [Suspect]
     Dosage: INDICATION: IMMUNE DEFICIT
     Route: 042
     Dates: start: 20090226
  3. HYDROCORTISONE [Suspect]
     Indication: DRUG USE FOR UNKNOWN INDICATION
     Route: 048

REACTIONS (1)
  - SHOCK [None]
